FAERS Safety Report 6535018-6 (Version None)
Quarter: 2010Q1

REPORT INFORMATION
  Report Type: 
  Country: None (occurrence: None)
  Receive Date: 20100111
  Receipt Date: 20100111
  Transmission Date: 20100710
  Serious: Yes (Life-Threatening)
  Sender: FDA-Public Use
  Company Number: None

PATIENT
  Age: 45 Year
  Sex: Male
  Weight: 113.3993 kg

DRUGS (1)
  1. CHANTIX [Suspect]
     Indication: SMOKING CESSATION THERAPY
     Dosage: 1 BID PO
     Route: 048
     Dates: start: 20090924, end: 20091231

REACTIONS (2)
  - FEELINGS OF WORTHLESSNESS [None]
  - SUICIDAL IDEATION [None]
